FAERS Safety Report 11054277 (Version 1)
Quarter: 2015Q2

REPORT INFORMATION
  Report Type: Spontaneous
  Country: AE (occurrence: None)
  Receive Date: 20150420
  Receipt Date: 20150420
  Transmission Date: 20150821
  Serious: Yes (Hospitalization)
  Sender: FDA-Public Use
  Company Number: IPC201504-000208

PATIENT
  Age: 47 Year
  Sex: Female

DRUGS (3)
  1. EXENATIDE (EXENATIDE) [Suspect]
     Active Substance: EXENATIDE
     Indication: TYPE 2 DIABETES MELLITUS
     Route: 058
  2. GLICLAZIDE (GLICLAZIDE) [Suspect]
     Active Substance: GLICLAZIDE
     Indication: TYPE 2 DIABETES MELLITUS
  3. METFORMIN HYDROCHLORIDE. [Suspect]
     Active Substance: METFORMIN HYDROCHLORIDE
     Indication: TYPE 2 DIABETES MELLITUS

REACTIONS (12)
  - Lactic acidosis [None]
  - Vomiting [None]
  - Dialysis [None]
  - Dehydration [None]
  - Nausea [None]
  - Hypotension [None]
  - Drug intolerance [None]
  - Diabetes mellitus inadequate control [None]
  - Decreased appetite [None]
  - Tachycardia [None]
  - Acute kidney injury [None]
  - Amylase increased [None]
